FAERS Safety Report 6375645-2 (Version None)
Quarter: 2009Q3

REPORT INFORMATION
  Report Type: 
  Country: None (occurrence: None)
  Receive Date: 20090918
  Receipt Date: 20090918
  Transmission Date: 20100115
  Serious: Yes (Hospitalization, Disabling)
  Sender: FDA-Public Use
  Company Number: None

PATIENT
  Age: 70 Year
  Sex: Female
  Weight: 108.5 kg

DRUGS (13)
  1. ENTEREG [Suspect]
     Indication: POSTOPERATIVE CARE
     Dosage: ENTEREG 12MG EVERY 12 HOURS PO
     Route: 048
     Dates: start: 20090724, end: 20090725
  2. AMLODIPINE [Concomitant]
  3. ENOXAPARIN [Concomitant]
  4. FLUEXETINE [Concomitant]
  5. SLIDING SCALE INSULIN [Concomitant]
  6. ISOSORBIDE [Concomitant]
  7. MONONITRATE [Concomitant]
  8. REGLAN [Concomitant]
  9. TOPROL-XL [Concomitant]
  10. ZOFRAN [Concomitant]
  11. MAGNESIUM SULFATE [Concomitant]
  12. PROCHLORPERAZINE [Concomitant]
  13. KETOROLAC TROMETHAMINE [Concomitant]

REACTIONS (1)
  - MYOCARDIAL INFARCTION [None]
